FAERS Safety Report 10221565 (Version 1)
Quarter: 2014Q2

REPORT INFORMATION
  Report Type: Spontaneous
  Country: US (occurrence: US)
  Receive Date: 20140606
  Receipt Date: 20140606
  Transmission Date: 20141212
  Serious: Yes (Other)
  Sender: FDA-Public Use
  Company Number: US-BAXTER-2014BAX029131

PATIENT
  Sex: Female

DRUGS (2)
  1. GAMMAGARD LIQUID [Suspect]
     Indication: PRODUCT USED FOR UNKNOWN INDICATION
     Route: 042
     Dates: start: 20140528, end: 20140528
  2. BENADRYL [Concomitant]
     Indication: PREMEDICATION
     Dosage: 30 MINUTES PRIOR TO INFUSION
     Route: 048

REACTIONS (1)
  - Chills [Recovered/Resolved]
